FAERS Safety Report 10308719 (Version 8)
Quarter: 2015Q2

REPORT INFORMATION
  Report Type: Report from Study
  Country: US (occurrence: US)
  Receive Date: 20140716
  Receipt Date: 20150430
  Transmission Date: 20150821
  Serious: Yes (Hospitalization)
  Sender: FDA-Public Use
  Company Number: US-JNJFOC-20140708479

PATIENT
  Age: 18 Year
  Sex: Female
  Weight: 72.4 kg

DRUGS (17)
  1. MULTIVITAMINS [Concomitant]
     Active Substance: VITAMINS
     Route: 048
  2. TACROLIMUS. [Concomitant]
     Active Substance: TACROLIMUS
     Route: 065
  3. MIDODRINE HYDROCHLORIDE. [Concomitant]
     Active Substance: MIDODRINE HYDROCHLORIDE
     Route: 065
  4. CETIRIZINE HYDROCHLORIDE. [Concomitant]
     Active Substance: CETIRIZINE HYDROCHLORIDE
     Route: 065
  5. VITAMIN D3 [Concomitant]
     Active Substance: CHOLECALCIFEROL
     Route: 065
  6. REMICADE [Suspect]
     Active Substance: INFLIXIMAB
     Indication: INFLAMMATORY BOWEL DISEASE
     Route: 042
     Dates: start: 20110413
  7. LOPERAMIDE [Concomitant]
     Active Substance: LOPERAMIDE
     Route: 065
  8. PREDNISONE. [Concomitant]
     Active Substance: PREDNISONE
     Route: 065
  9. NEXIUM [Concomitant]
     Active Substance: ESOMEPRAZOLE MAGNESIUM
     Route: 065
  10. SIMETHICONE [Concomitant]
     Active Substance: DIMETHICONE\SILICON DIOXIDE\SIMETHICONE
     Route: 065
  11. MIDODRINE [Concomitant]
     Active Substance: MIDODRINE
     Route: 065
  12. ONDANSETRON HYDROCHLORIDE. [Concomitant]
     Active Substance: ONDANSETRON HYDROCHLORIDE
     Route: 065
  13. TRIAMCINOLONE HEXACETONIDE [Concomitant]
     Active Substance: TRIAMCINOLONE HEXACETONIDE
     Route: 065
  14. ESOMEPRAZOLE [Concomitant]
     Active Substance: ESOMEPRAZOLE
     Route: 065
  15. CALCIUM CARBONATE. [Concomitant]
     Active Substance: CALCIUM CARBONATE
     Route: 065
  16. METOPROLOL [Concomitant]
     Active Substance: METOPROLOL
     Route: 065
  17. TRAMADOL [Concomitant]
     Active Substance: TRAMADOL
     Route: 065

REACTIONS (1)
  - Small intestinal obstruction [Recovered/Resolved]

NARRATIVE: CASE EVENT DATE: 20140707
